FAERS Safety Report 9746967 (Version 2)
Quarter: 2013Q4

REPORT INFORMATION
  Report Type: Spontaneous
  Country: JP (occurrence: JP)
  Receive Date: 20131211
  Receipt Date: 20131220
  Transmission Date: 20140711
  Serious: Yes (Other)
  Sender: FDA-Public Use
  Company Number: JP-TAKEDA-2013TJP003606

PATIENT
  Age: 77 Year
  Sex: Male

DRUGS (4)
  1. LIOVEL COMBINATION TABLETS LD [Suspect]
     Indication: DIABETES MELLITUS
     Dosage: 1 DF, QD
     Route: 048
     Dates: start: 2012, end: 20131206
  2. CRESTOR [Suspect]
     Dosage: UNK
     Route: 048
  3. AZILVA [Concomitant]
     Dosage: UNK
     Route: 048
     Dates: start: 201311
  4. ACE INHIBITORS [Concomitant]
     Dosage: UNK
     Route: 048
     Dates: end: 201311

REACTIONS (1)
  - Interstitial lung disease [Not Recovered/Not Resolved]
